FAERS Safety Report 5368043-1 (Version None)
Quarter: 2007Q2

REPORT INFORMATION
  Report Type: 
  Country: None (occurrence: None)
  Receive Date: 20070622
  Receipt Date: 20070612
  Transmission Date: 20071010
  Serious: Yes (Other)
  Sender: FDA-Public Use
  Company Number: GB-PFIZER INC-2007049046

PATIENT

DRUGS (1)
  1. EPANUTIN [Suspect]
     Route: 048

REACTIONS (1)
  - FEEDING DISORDER [None]
